FAERS Safety Report 8449738-X (Version None)
Quarter: 2012Q2

REPORT INFORMATION
  Report Type: 
  Country: None (occurrence: None)
  Receive Date: 20120620
  Receipt Date: 20120614
  Transmission Date: 20120825
  Serious: No
  Sender: FDA-Public Use
  Company Number: US-PFIZER INC-2012130885

PATIENT
  Sex: Female
  Weight: 77.098 kg

DRUGS (8)
  1. ARTHROTEC [Suspect]
     Indication: PHLEBITIS
  2. XANAX [Suspect]
     Indication: STRESS
  3. AMBIEN [Suspect]
     Indication: INSOMNIA
     Dosage: 10 MG, DAILY
     Route: 048
     Dates: start: 20120201
  4. ARTHROTEC [Suspect]
     Indication: PAIN IN EXTREMITY
     Dosage: 200MCG+50 MG
     Route: 048
     Dates: start: 20120201
  5. LYRICA [Suspect]
     Indication: NEUROPATHY PERIPHERAL
     Dosage: 25 MG, DAILY
     Route: 048
     Dates: start: 20120201
  6. XANAX [Suspect]
     Indication: ANXIETY
     Dosage: 0.25 MG, AS NEEDED
     Route: 048
     Dates: start: 20120201
  7. GLUCOTROL XL [Suspect]
     Indication: DIABETES MELLITUS
     Dosage: 10 MG, DAILY
     Route: 048
     Dates: start: 20120201
  8. GLIPIZIDE [Suspect]
     Dosage: UNK

REACTIONS (5)
  - DIARRHOEA [None]
  - DRUG HYPERSENSITIVITY [None]
  - DERMATITIS CONTACT [None]
  - PAIN [None]
  - DRUG INEFFECTIVE [None]
